FAERS Safety Report 8431735-1 (Version None)
Quarter: 2012Q2

REPORT INFORMATION
  Report Type: 
  Country: None (occurrence: None)
  Receive Date: 20120613
  Receipt Date: 20120604
  Transmission Date: 20120825
  Serious: Yes (Hospitalization)
  Sender: FDA-Public Use
  Company Number: US-BAYER-2012-023772

PATIENT
  Age: 25 Year
  Sex: Female

DRUGS (4)
  1. CIPROFLOXACIN [Concomitant]
     Dosage: 500 MG, UNK
     Route: 048
     Dates: start: 20070703
  2. EXCEDRIN IB [Concomitant]
     Dosage: UNK
     Route: 048
     Dates: start: 20070801
  3. YASMIN [Suspect]
  4. SYNTHROID [Concomitant]
     Dosage: 0.225 MG, UNK
     Route: 048
     Dates: start: 20070801

REACTIONS (1)
  - PULMONARY EMBOLISM [None]
